FAERS Safety Report 21076424 (Version 1)
Quarter: 2022Q3

REPORT INFORMATION
  Report Type: Spontaneous
  Country: US (occurrence: US)
  Receive Date: 20220713
  Receipt Date: 20220713
  Transmission Date: 20221026
  Serious: Yes (Hospitalization)
  Sender: FDA-Public Use
  Company Number: US-GENERICUS, INC.-2022GNR00011

PATIENT
  Sex: Male
  Weight: 66.667 kg

DRUGS (1)
  1. TOBRAMYCIN [Suspect]
     Active Substance: TOBRAMYCIN
     Indication: Cystic fibrosis
     Dosage: 300 MG/5 ML (1 VIAL) VIA NEBULIZER, 2X/DAY FOR 28 DAYS ON AND 28 DAYS OFF

REACTIONS (1)
  - Infective pulmonary exacerbation of cystic fibrosis [Unknown]
